FAERS Safety Report 6391562-6 (Version None)
Quarter: 2009Q4

REPORT INFORMATION
  Report Type: 
  Country: None (occurrence: None)
  Receive Date: 20091007
  Receipt Date: 20090928
  Transmission Date: 20100525
  Serious: Yes (Life-Threatening, Hospitalization, Other)
  Sender: FDA-Public Use
  Company Number: US-JNJFOC-20090405388

PATIENT
  Sex: Female
  Weight: 81.65 kg

DRUGS (4)
  1. REMICADE [Suspect]
     Route: 042
     Dates: start: 20070104, end: 20090105
  2. REMICADE [Suspect]
     Route: 042
     Dates: start: 20070104, end: 20090105
  3. REMICADE [Suspect]
     Indication: RHEUMATOID ARTHRITIS
     Route: 042
     Dates: start: 20070104, end: 20090105
  4. REMICADE [Suspect]
     Indication: PSORIATIC ARTHROPATHY
     Route: 042
     Dates: start: 20070104, end: 20090105

REACTIONS (2)
  - GASTRIC ULCER PERFORATION [None]
  - WOUND INFECTION STAPHYLOCOCCAL [None]
